FAERS Safety Report 15736698 (Version 1)
Quarter: 2018Q4

REPORT INFORMATION
  Report Type: Spontaneous
  Country: DE (occurrence: DE)
  Receive Date: 20181218
  Receipt Date: 20181218
  Transmission Date: 20190205
  Serious: Yes (Life-Threatening, Hospitalization, Other)
  Sender: FDA-Public Use
  Company Number: PHBS1993DE03586

PATIENT
  Age: 43 Year
  Sex: Female

DRUGS (6)
  1. PERAZINE [Suspect]
     Active Substance: PERAZINE
     Indication: BIPOLAR DISORDER
     Dosage: 100 MG, UNK
     Route: 065
  2. SULPIRIDE [Suspect]
     Active Substance: SULPIRIDE
     Indication: PSYCHOTIC DISORDER
  3. CARBAMAZEPINE. [Suspect]
     Active Substance: CARBAMAZEPINE
     Indication: PSYCHOTIC DISORDER
  4. SULPIRIDE [Suspect]
     Active Substance: SULPIRIDE
     Indication: BIPOLAR I DISORDER
     Dosage: 600 MG, UNK
     Route: 065
  5. CARBAMAZEPINE. [Suspect]
     Active Substance: CARBAMAZEPINE
     Indication: BIPOLAR I DISORDER
     Dosage: 200 MG, UNK
     Route: 065
  6. PERAZINE [Suspect]
     Active Substance: PERAZINE
     Indication: PSYCHOTIC DISORDER

REACTIONS (7)
  - Erythema [Unknown]
  - Toxic epidermal necrolysis [Unknown]
  - Catatonia [Recovering/Resolving]
  - Condition aggravated [Recovering/Resolving]
  - Dermatitis bullous [Unknown]
  - Withdrawal syndrome [Recovering/Resolving]
  - Bipolar I disorder [Unknown]
